FAERS Safety Report 16771982 (Version 3)
Quarter: 2020Q2

REPORT INFORMATION
  Report Type: Spontaneous
  Country: US (occurrence: US)
  Receive Date: 20190904
  Receipt Date: 20200417
  Transmission Date: 20200713
  Serious: Yes (Hospitalization, Other)
  Sender: FDA-Public Use
  Company Number: US-PFIZER INC-2019374507

PATIENT
  Age: 74 Year
  Sex: Female
  Weight: 54.43 kg

DRUGS (2)
  1. XELJANZ XR [Suspect]
     Active Substance: TOFACITINIB CITRATE
     Indication: RHEUMATOID ARTHRITIS
     Dosage: 11 MG, 1X/DAY
     Route: 048
     Dates: start: 201812
  2. XELJANZ XR [Suspect]
     Active Substance: TOFACITINIB CITRATE
     Dosage: 11 MG, 1X/DAY
     Route: 048

REACTIONS (7)
  - Contusion [Recovered/Resolved]
  - Upper limb fracture [Recovered/Resolved]
  - Limb injury [Recovered/Resolved]
  - Pain [Recovered/Resolved]
  - Road traffic accident [Recovered/Resolved]
  - Skin discolouration [Recovered/Resolved]
  - Malaise [Unknown]

NARRATIVE: CASE EVENT DATE: 20190601
